FAERS Safety Report 7347755-4 (Version None)
Quarter: 2011Q1

REPORT INFORMATION
  Report Type: 
  Country: None (occurrence: None)
  Receive Date: 20110222
  Receipt Date: 20100519
  Transmission Date: 20110831
  Serious: Yes (Life-Threatening, Hospitalization)
  Sender: FDA-Public Use
  Company Number: 2010023870

PATIENT
  Sex: Male
  Weight: 93.8946 kg

DRUGS (5)
  1. SINGULAIR [Concomitant]
  2. VIVAGLOBIN [Suspect]
     Indication: IMMUNODEFICIENCY COMMON VARIABLE
     Dosage: 0.6 ML, SMALL ESCALATION (PULSE) DOSES ADMINISTERED (TOTAL OF 0.6 CC) SUBCUTANEOUS
     Route: 058
     Dates: start: 20090824, end: 20090824
  3. OMALIZUMAB (OMALIZUMAB) [Concomitant]
  4. ADVAIR HFA [Concomitant]
  5. FLONASE [Concomitant]

REACTIONS (5)
  - WHEEZING [None]
  - ANAPHYLACTIC REACTION [None]
  - URTICARIA [None]
  - LARYNGEAL OEDEMA [None]
  - DYSPNOEA [None]
